FAERS Safety Report 26176177 (Version 1)
Quarter: 2025Q4

REPORT INFORMATION
  Report Type: Spontaneous
  Country: US (occurrence: None)
  Receive Date: 20251218
  Receipt Date: 20251218
  Transmission Date: 20260117
  Serious: No
  Sender: FDA-CTU
  Company Number: None

PATIENT

DRUGS (1)
  1. BRIUMVI [Suspect]
     Active Substance: UBLITUXIMAB-XIIY

REACTIONS (4)
  - Feeling abnormal [None]
  - Adverse drug reaction [None]
  - Chest discomfort [None]
  - Disease complication [None]

NARRATIVE: CASE EVENT DATE: 20251217
